FAERS Safety Report 7467284-7 (Version None)
Quarter: 2011Q2

REPORT INFORMATION
  Report Type: 
  Country: None (occurrence: None)
  Receive Date: 20110505
  Receipt Date: 20110505
  Transmission Date: 20111010
  Serious: Yes (Hospitalization)
  Sender: FDA-Public Use
  Company Number: None

PATIENT
  Age: 65 Year
  Sex: Male
  Weight: 82.6 kg

DRUGS (2)
  1. ATENOLOL [Suspect]
     Indication: HYPERTENSION
     Dosage: 50 MG EVERY DAY PO
     Route: 048
     Dates: start: 20100323, end: 20100518
  2. FUROSEMIDE [Suspect]
     Dosage: 20 MG EVERY DAY PO
     Route: 048
     Dates: start: 20100406, end: 20100518

REACTIONS (3)
  - DYSPHAGIA [None]
  - THROAT TIGHTNESS [None]
  - ANGIOEDEMA [None]
